FAERS Safety Report 11559662 (Version 1)
Quarter: 2015Q3

REPORT INFORMATION
  Report Type: Spontaneous
  Country: US (occurrence: None)
  Receive Date: 20150925
  Receipt Date: 20150925
  Transmission Date: 20151125
  Serious: Yes (Hospitalization)
  Sender: FDA-Public Use
  Company Number: None

PATIENT
  Age: 57 Year
  Sex: Female
  Weight: 79.47 kg

DRUGS (3)
  1. CARBOPLATIN. [Suspect]
     Active Substance: CARBOPLATIN
     Dates: end: 20150709
  2. METFORMIN HYDROCHLORIDE. [Suspect]
     Active Substance: METFORMIN HYDROCHLORIDE
     Dates: end: 20150910
  3. TAXOL [Suspect]
     Active Substance: PACLITAXEL
     Dates: end: 20150709

REACTIONS (5)
  - Neutropenia [None]
  - Anaemia [None]
  - Vomiting [None]
  - Nausea [None]
  - Platelet count decreased [None]

NARRATIVE: CASE EVENT DATE: 20150508
